FAERS Safety Report 5972978-6 (Version None)
Quarter: 2008Q4

REPORT INFORMATION
  Report Type: 
  Country: None (occurrence: None)
  Receive Date: 20081126
  Receipt Date: 20081126
  Transmission Date: 20090506
  Serious: Yes (Hospitalization)
  Sender: FDA-Public Use
  Company Number: None

PATIENT
  Age: 52 Year
  Sex: Male
  Weight: 80.7403 kg

DRUGS (1)
  1. WARFARIN SODIUM [Suspect]
     Dosage: 15MG EVERY OTHER DAY; 15.5MG EVERY OTHER DAY

REACTIONS (3)
  - DYSURIA [None]
  - HAEMATURIA [None]
  - INTERNATIONAL NORMALISED RATIO INCREASED [None]
